FAERS Safety Report 12228588 (Version 1)
Quarter: 2016Q1

REPORT INFORMATION
  Report Type: Spontaneous
  Country: US (occurrence: None)
  Receive Date: 20160331
  Receipt Date: 20160331
  Transmission Date: 20160526
  Serious: Yes (Other)
  Sender: FDA-Public Use
  Company Number: None

PATIENT
  Age: 50 Year
  Sex: Female
  Weight: 61.69 kg

DRUGS (6)
  1. ZYCLARA [Suspect]
     Active Substance: IMIQUIMOD
     Indication: ACTINIC KERATOSIS
     Dosage: 13 PUMP AT BEDTIME APPLIED TO A SURFACE, USUALLY THE SKIN
     Dates: start: 20160227, end: 20160328
  2. SKINMEDICA RETINOL COMPLEX 0.25 [Concomitant]
     Active Substance: COSMETICS
  3. SKINMEDICA VITAMIN C+E COMPLEX [Concomitant]
  4. ZYCLARA [Suspect]
     Active Substance: IMIQUIMOD
     Indication: PRECANCEROUS CELLS PRESENT
     Dosage: 13 PUMP AT BEDTIME APPLIED TO A SURFACE, USUALLY THE SKIN
     Dates: start: 20160227, end: 20160328
  5. HELIOCARE CAPSULES [Concomitant]
  6. DAILY ANTIOXIDANT [Concomitant]

REACTIONS (2)
  - Cataract [None]
  - Vision blurred [None]

NARRATIVE: CASE EVENT DATE: 20160325
